FAERS Safety Report 23288596 (Version 1)
Quarter: 2023Q4

REPORT INFORMATION
  Report Type: Spontaneous
  Country: US (occurrence: None)
  Receive Date: 20231211
  Receipt Date: 20231211
  Transmission Date: 20240110
  Serious: Yes (Congenital Anomaly)
  Sender: FDA-Public Use
  Company Number: None

PATIENT
  Age: 32 Year
  Sex: Female

DRUGS (2)
  1. EMGALITY [Suspect]
     Active Substance: GALCANEZUMAB-GNLM
  2. VITAMINS [Concomitant]
     Active Substance: VITAMINS

REACTIONS (7)
  - Maternal exposure during pregnancy [None]
  - Foetal exposure during pregnancy [None]
  - Congenital midline defect [None]
  - Cleft lip [None]
  - Tracheal stenosis [None]
  - Vascular rings and slings [None]
  - Tethered cord syndrome [None]

NARRATIVE: CASE EVENT DATE: 20230317
